FAERS Safety Report 7812491-4 (Version None)
Quarter: 2011Q4

REPORT INFORMATION
  Report Type: 
  Country: None (occurrence: None)
  Receive Date: 20111013
  Receipt Date: 20111007
  Transmission Date: 20120403
  Serious: Yes (Hospitalization, Other)
  Sender: FDA-Public Use
  Company Number: US-SANOFI-AVENTIS-2011SA066382

PATIENT
  Sex: Female
  Weight: 68 kg

DRUGS (1)
  1. PLAVIX [Suspect]
     Indication: CORONARY ARTERY DISEASE
     Route: 048
     Dates: start: 20050101

REACTIONS (9)
  - PNEUMONIA [None]
  - APHONIA [None]
  - NERVOUSNESS [None]
  - INCREASED UPPER AIRWAY SECRETION [None]
  - ATRIAL FIBRILLATION [None]
  - NECK PAIN [None]
  - INSOMNIA [None]
  - HYPERTENSION [None]
  - BRONCHITIS [None]
